FAERS Safety Report 20028288 (Version 1)
Quarter: 2021Q4

REPORT INFORMATION
  Report Type: Other
  Country: LB (occurrence: LB)
  Receive Date: 20211103
  Receipt Date: 20211103
  Transmission Date: 20220303
  Serious: Yes (Other)
  Sender: FDA-Public Use
  Company Number: LB-002147023-NVSC2021LB048719

PATIENT
  Age: 64 Year
  Sex: Male
  Weight: 65 kg

DRUGS (2)
  1. LUCENTIS [Suspect]
     Active Substance: RANIBIZUMAB
     Indication: Diabetic retinal oedema
     Dosage: 1 DF (10 MG/ML)
     Route: 031
     Dates: start: 20200127
  2. LUCENTIS [Suspect]
     Active Substance: RANIBIZUMAB
     Dosage: 1 DF (20 MG/ML)
     Route: 031

REACTIONS (7)
  - Muscular weakness [Recovered/Resolved]
  - Cataract [Recovered/Resolved]
  - Cerebrovascular accident [Recovered/Resolved]
  - Cerebellar stroke [Unknown]
  - Cataract [Recovered/Resolved]
  - Aphasia [Unknown]
  - Fall [Unknown]

NARRATIVE: CASE EVENT DATE: 20210201
